FAERS Safety Report 7746816-5 (Version None)
Quarter: 2011Q3

REPORT INFORMATION
  Report Type: 
  Country: None (occurrence: None)
  Receive Date: 20110913
  Receipt Date: 20110907
  Transmission Date: 20111222
  Serious: No
  Sender: FDA-Public Use
  Company Number: US-PFIZER INC-2010126143

PATIENT
  Sex: Female
  Weight: 73.923 kg

DRUGS (8)
  1. CELEBREX [Suspect]
     Indication: ARTHRITIS
     Dosage: 200 MG, DAILY
     Route: 048
     Dates: start: 20110701
  2. PRISTIQ [Suspect]
     Indication: DEPRESSION
     Dosage: 50 MG, DAILY
     Route: 048
     Dates: start: 20080101, end: 20110701
  3. PRISTIQ [Suspect]
     Indication: SOMNOLENCE
  4. VITAMIN D [Concomitant]
     Indication: PROPHYLAXIS
     Dosage: 1000MG
     Dates: start: 20100101
  5. THYROID TAB [Concomitant]
     Indication: THYROID FUNCTION TEST ABNORMAL
     Dosage: 90 MG, DAILY
     Route: 048
     Dates: start: 20110101
  6. CYMBALTA [Suspect]
     Dosage: UNK
  7. PRISTIQ [Suspect]
     Indication: FATIGUE
     Dosage: 50 MG, 2X/DAY
     Route: 048
     Dates: start: 20110701
  8. CALCIUM CITRATE [Concomitant]
     Indication: PROPHYLAXIS
     Dosage: UNK
     Dates: start: 20010101

REACTIONS (5)
  - SOMNOLENCE [None]
  - ARTHRITIS [None]
  - FEELING ABNORMAL [None]
  - DRUG INEFFECTIVE [None]
  - FATIGUE [None]
